FAERS Safety Report 19126535 (Version 1)
Quarter: 2021Q2

REPORT INFORMATION
  Report Type: Spontaneous
  Country: US (occurrence: US)
  Receive Date: 20210413
  Receipt Date: 20210413
  Transmission Date: 20210717
  Serious: Yes (Hospitalization)
  Sender: FDA-Public Use
  Company Number: None

PATIENT
  Age: 79 Year
  Sex: Male
  Weight: 93 kg

DRUGS (1)
  1. LINEZOLID (LINEZOLID 600MG TAB) [Suspect]
     Active Substance: LINEZOLID
     Indication: ATRIAL FIBRILLATION
     Route: 048
     Dates: start: 20201216, end: 20201230

REACTIONS (1)
  - Thrombocytopenia [None]

NARRATIVE: CASE EVENT DATE: 20210105
